FAERS Safety Report 7435062-0 (Version None)
Quarter: 2011Q2

REPORT INFORMATION
  Report Type: 
  Country: None (occurrence: None)
  Receive Date: 20110425
  Receipt Date: 20110413
  Transmission Date: 20111010
  Serious: Yes (Hospitalization)
  Sender: FDA-Public Use
  Company Number: PHHY2010MX39529

PATIENT
  Age: 58 Year
  Sex: Male

DRUGS (5)
  1. LANTUS [Concomitant]
  2. ROFUCAL [Concomitant]
  3. GALVUS MET [Suspect]
     Indication: DIABETES MELLITUS
     Dosage: 2 TABLETS ( 50/500 MG ) PER DAY
     Dates: start: 20081110
  4. EXFORGE [Suspect]
     Indication: HYPERTENSION
     Dosage: 160 MG VALS AND 5 MG AMLO, 1 TABLET DAILY
     Dates: start: 20090115, end: 20110302
  5. GALVUS MET [Suspect]
     Dosage: 500 MG METF AND 50 MG VILD, 1 TABLET DAILY
     Dates: start: 20110302

REACTIONS (1)
  - CHOLELITHIASIS [None]
